FAERS Safety Report 16589580 (Version 1)
Quarter: 2019Q3

REPORT INFORMATION
  Report Type: Spontaneous
  Country: US (occurrence: US)
  Receive Date: 20190717
  Receipt Date: 20190717
  Transmission Date: 20191004
  Serious: Yes (Disabling, Other)
  Sender: FDA-Public Use
  Company Number: None

PATIENT
  Age: 22 Year
  Sex: Male
  Weight: 67.5 kg

DRUGS (10)
  1. TOPIRAMATE. [Suspect]
     Active Substance: TOPIRAMATE
     Indication: DEPRESSION
     Dosage: ?          QUANTITY:1 CAPSULE(S);?
     Route: 048
  2. PREP [Concomitant]
  3. LITHIUM OROTATE [Suspect]
     Active Substance: LITHIUM OROTATE
     Indication: DEPRESSION
     Dosage: ?          QUANTITY:1 TABLET(S);?
     Route: 048
  4. ALBUTEROL. [Concomitant]
     Active Substance: ALBUTEROL
  5. XYZAL [Concomitant]
     Active Substance: LEVOCETIRIZINE DIHYDROCHLORIDE
  6. DOXYCYCLINE. [Concomitant]
     Active Substance: DOXYCYCLINE
  7. AXE [Concomitant]
     Active Substance: ALUMINUM CHLOROHYDRATE
  8. ZZZQUIL NIGHTTIME SLEEP-AID [Concomitant]
     Active Substance: DIPHENHYDRAMINE HYDROCHLORIDE
  9. DIFFERIN [Concomitant]
     Active Substance: ADAPALENE
  10. RELIV [Concomitant]

REACTIONS (4)
  - Parkinson^s disease [None]
  - Somnolence [None]
  - Mental impairment [None]
  - Memory impairment [None]

NARRATIVE: CASE EVENT DATE: 20131223
